FAERS Safety Report 9393730 (Version 3)
Quarter: 2013Q3

REPORT INFORMATION
  Report Type: Spontaneous
  Country: GB (occurrence: GB)
  Receive Date: 20130710
  Receipt Date: 20130916
  Transmission Date: 20140515
  Serious: Yes (Hospitalization, Other)
  Sender: FDA-Public Use
  Company Number: GB-TEVA-417482ISR

PATIENT
  Age: 47 Year
  Sex: Male

DRUGS (1)
  1. COPAXONE [Suspect]
     Indication: MULTIPLE SCLEROSIS
     Dosage: 20 MILLIGRAM DAILY;
     Route: 058
     Dates: start: 20100310, end: 20130529

REACTIONS (8)
  - Acute myocardial infarction [Recovered/Resolved with Sequelae]
  - Cardiac arrest [Unknown]
  - Hyperglycaemia [Not Recovered/Not Resolved]
  - Diabetes mellitus [Not Recovered/Not Resolved]
  - Fall [Unknown]
  - Chest pain [Unknown]
  - Thrombosis [Recovered/Resolved with Sequelae]
  - Musculoskeletal pain [Unknown]
